FAERS Safety Report 10479733 (Version 3)
Quarter: 2014Q4

REPORT INFORMATION
  Report Type: Report from Study
  Country: US (occurrence: US)
  Receive Date: 20140927
  Receipt Date: 20141110
  Transmission Date: 20150528
  Serious: Yes (Other)
  Sender: FDA-Public Use
  Company Number: US-ALEXION PHARMACEUTICALS INC-A200800797

PATIENT

DRUGS (4)
  1. PREDNISONE. [Concomitant]
     Active Substance: PREDNISONE
     Indication: PRODUCT USED FOR UNKNOWN INDICATION
     Dosage: UNK
  2. SOLIRIS [Suspect]
     Active Substance: ECULIZUMAB
     Indication: PAROXYSMAL NOCTURNAL HAEMOGLOBINURIA
     Dosage: UNK
     Route: 042
  3. FOLIC ACID. [Concomitant]
     Active Substance: FOLIC ACID
     Indication: PRODUCT USED FOR UNKNOWN INDICATION
     Dosage: UNK
  4. CYCLOSPORIN [Concomitant]
     Active Substance: CYCLOSPORINE
     Indication: PRODUCT USED FOR UNKNOWN INDICATION
     Dosage: UNK

REACTIONS (15)
  - Marrow hyperplasia [Unknown]
  - Anaemia [Not Recovered/Not Resolved]
  - Serum ferritin increased [Unknown]
  - Biopsy bone marrow [Unknown]
  - Extravascular haemolysis [Not Recovered/Not Resolved]
  - Dyspnoea [Recovering/Resolving]
  - Fatigue [Recovering/Resolving]
  - Blood bilirubin increased [Unknown]
  - Drug ineffective [Unknown]
  - Blood lactate dehydrogenase increased [Unknown]
  - Iron overload [Unknown]
  - Haemoglobinuria [Recovered/Resolved]
  - Haemoglobin decreased [Not Recovered/Not Resolved]
  - Hypertension [Unknown]
  - Platelet count decreased [Unknown]
